FAERS Safety Report 6720264-9 (Version None)
Quarter: 2010Q2

REPORT INFORMATION
  Report Type: 
  Country: None (occurrence: None)
  Receive Date: 20100507
  Receipt Date: 20100426
  Transmission Date: 20101027
  Serious: Yes (Hospitalization, Other)
  Sender: FDA-Public Use
  Company Number: A-US2010-36093

PATIENT
  Age: 21 Year
  Sex: Female

DRUGS (10)
  1. VENTAVIS [Suspect]
     Indication: PULMONARY ARTERIAL HYPERTENSION
     Dosage: SEE IMAGE
     Route: 055
     Dates: start: 20040430, end: 20040503
  2. VENTAVIS [Suspect]
     Indication: PULMONARY ARTERIAL HYPERTENSION
     Dosage: SEE IMAGE
     Route: 055
  3. VENTAVIS [Suspect]
     Indication: PULMONARY ARTERIAL HYPERTENSION
     Dosage: SEE IMAGE
     Route: 055
  4. VENTAVIS [Suspect]
     Indication: PULMONARY ARTERIAL HYPERTENSION
     Dosage: SEE IMAGE
     Route: 055
  5. OCYTOCIN (OXYTOCIN) [Suspect]
  6. CALCIUM CHANNEL BLOCKERS [Concomitant]
  7. WARFARIN SODIUM [Concomitant]
  8. FOLIC ACID [Concomitant]
  9. ENOXAPARIN SODIUM [Concomitant]
  10. NIFEDIPINE [Concomitant]

REACTIONS (6)
  - CAESAREAN SECTION [None]
  - DRUG EXPOSURE DURING PREGNANCY [None]
  - FEMALE STERILISATION [None]
  - HIGH RISK PREGNANCY [None]
  - OLIGOHYDRAMNIOS [None]
  - TACHYCARDIA [None]
